FAERS Safety Report 20863048 (Version 4)
Quarter: 2022Q3

REPORT INFORMATION
  Report Type: Spontaneous
  Country: DE (occurrence: DE)
  Receive Date: 20220523
  Receipt Date: 20220808
  Transmission Date: 20221027
  Serious: Yes (Other)
  Sender: FDA-Public Use
  Company Number: DE-NOVARTISPH-NVSC2022DE115872

PATIENT
  Age: 65 Year
  Sex: Male
  Weight: 67.4 kg

DRUGS (10)
  1. FLUOROURACIL [Suspect]
     Active Substance: FLUOROURACIL
     Indication: Oesophageal carcinoma
     Dosage: UNK UNK, Q2W
     Route: 040
     Dates: start: 20210824, end: 20220426
  2. FLUOROURACIL [Suspect]
     Active Substance: FLUOROURACIL
     Dosage: UNK, Q2W
     Route: 065
  3. OXALIPLATIN [Suspect]
     Active Substance: OXALIPLATIN
     Indication: Oesophageal carcinoma
     Dosage: 120 MG, BIW
     Route: 040
     Dates: start: 20210824, end: 20220426
  4. DOCETAXEL [Suspect]
     Active Substance: DOCETAXEL
     Indication: Oesophageal carcinoma
     Dosage: 53 MG, BIW
     Route: 040
     Dates: start: 20210824, end: 20220426
  5. LEUCOVORIN CALCIUM [Suspect]
     Active Substance: LEUCOVORIN CALCIUM
     Indication: Adverse event
     Dosage: UNK, QW (2X/WEEK)
     Route: 065
     Dates: start: 20210824, end: 20220426
  6. LEUCOVORIN CALCIUM [Suspect]
     Active Substance: LEUCOVORIN CALCIUM
     Dosage: 282 MG
     Route: 065
     Dates: start: 20220426, end: 20220426
  7. LEUCOVORIN [Suspect]
     Active Substance: LEUCOVORIN
     Indication: Adverse event
     Dosage: UNK UNK, BIW
     Route: 065
     Dates: start: 20210824, end: 20220426
  8. LEUCOVORIN [Suspect]
     Active Substance: LEUCOVORIN
     Dosage: 282 MG
     Route: 040
     Dates: start: 20220426, end: 20220426
  9. NIVOLUMAB [Concomitant]
     Active Substance: NIVOLUMAB
     Indication: Immunochemotherapy
     Dosage: 480 MG, QW (240 MG, 2X/WEEK)
     Route: 065
     Dates: start: 20211110
  10. NIVOLUMAB [Concomitant]
     Active Substance: NIVOLUMAB
     Dosage: 240 MG, BIW
     Route: 065
     Dates: start: 20211110

REACTIONS (4)
  - Tachycardia [Recovered/Resolved]
  - Oxygen saturation decreased [Recovered/Resolved]
  - Chills [Recovering/Resolving]
  - Body temperature increased [Recovered/Resolved]

NARRATIVE: CASE EVENT DATE: 20220426
